FAERS Safety Report 15914918 (Version 1)
Quarter: 2019Q1

REPORT INFORMATION
  Report Type: Spontaneous
  Country: US (occurrence: US)
  Receive Date: 20190114
  Receipt Date: 20190114
  Transmission Date: 20190417
  Serious: Yes (Other)
  Sender: FDA-Public Use
  Company Number: None

PATIENT
  Age: 68 Year
  Sex: Male

DRUGS (1)
  1. REPATHA [Suspect]
     Active Substance: EVOLOCUMAB
     Indication: HYPERLIPIDAEMIA
     Dosage: OTHER
     Route: 058
     Dates: start: 20180918

REACTIONS (4)
  - Device malfunction [None]
  - Contusion [None]
  - Accidental exposure to product [None]
  - Injection site extravasation [None]

NARRATIVE: CASE EVENT DATE: 20190101
